FAERS Safety Report 6432109-5 (Version None)
Quarter: 2009Q4

REPORT INFORMATION
  Report Type: 
  Country: None (occurrence: None)
  Receive Date: 20091109
  Receipt Date: 20091102
  Transmission Date: 20100525
  Serious: Yes (Death, Other)
  Sender: FDA-Public Use
  Company Number: PHEH2009US13759

PATIENT
  Sex: Male

DRUGS (2)
  1. AFINITOR [Suspect]
     Dosage: 10 MG DAILY
     Route: 048
     Dates: start: 20090828, end: 20090904
  2. AFINITOR [Suspect]
     Dosage: 10 MG DAILY
     Dates: start: 20090911, end: 20090922

REACTIONS (2)
  - DEATH [None]
  - PLATELET COUNT DECREASED [None]
